FAERS Safety Report 5573358-8 (Version None)
Quarter: 2007Q4

REPORT INFORMATION
  Report Type: 
  Country: None (occurrence: None)
  Receive Date: 20071220
  Receipt Date: 20071220
  Transmission Date: 20080405
  Serious: Yes (Hospitalization)
  Sender: FDA-Public Use
  Company Number: None

PATIENT
  Age: 83 Year
  Sex: Female
  Weight: 84.7 kg

DRUGS (6)
  1. SPIRONOLACTONE [Suspect]
     Dosage: 25   BID  PO   (DURATION: CHRONIC)
     Route: 048
  2. BENAZEPRIL/HCTZ [Suspect]
     Dosage: 20/25   DAILY  PO   (DURATION: CHRONIC)
     Route: 048
  3. NABUMETONE [Concomitant]
  4. GUANFACINE HYDROCHLORIDE [Concomitant]
  5. ZEGERID [Concomitant]
  6. DETROL [Concomitant]

REACTIONS (4)
  - HYPERKALAEMIA [None]
  - NAUSEA [None]
  - RENAL FAILURE ACUTE [None]
  - VOMITING [None]
